FAERS Safety Report 13402197 (Version 2)
Quarter: 2017Q2

REPORT INFORMATION
  Report Type: Spontaneous
  Country: US (occurrence: US)
  Receive Date: 20170404
  Receipt Date: 20170501
  Transmission Date: 20170830
  Serious: Yes (Other)
  Sender: FDA-Public Use
  Company Number: US-009507513-1704USA000567

PATIENT
  Age: 21 Year
  Sex: Male

DRUGS (8)
  1. PANOBINOSTAT [Suspect]
     Active Substance: PANOBINOSTAT
     Indication: CHEMOTHERAPY
  2. TEMODAR [Suspect]
     Active Substance: TEMOZOLOMIDE
     Indication: MALIGNANT OLIGODENDROGLIOMA
     Dosage: UNK
     Route: 048
  3. TEMODAR [Suspect]
     Active Substance: TEMOZOLOMIDE
     Indication: CHEMOTHERAPY
  4. ZOLINZA [Suspect]
     Active Substance: VORINOSTAT
     Indication: MALIGNANT OLIGODENDROGLIOMA
     Dosage: UNK
     Route: 048
  5. ZOLINZA [Suspect]
     Active Substance: VORINOSTAT
     Indication: CHEMOTHERAPY
  6. BEVACIZUMAB [Suspect]
     Active Substance: BEVACIZUMAB
     Indication: CHEMOTHERAPY
  7. PANOBINOSTAT [Suspect]
     Active Substance: PANOBINOSTAT
     Indication: MALIGNANT OLIGODENDROGLIOMA
     Dosage: UNK
  8. BEVACIZUMAB [Suspect]
     Active Substance: BEVACIZUMAB
     Indication: MALIGNANT OLIGODENDROGLIOMA
     Dosage: UNK

REACTIONS (3)
  - Intracranial venous sinus thrombosis [Unknown]
  - Cerebral haemorrhage [Recovered/Resolved]
  - Superior sagittal sinus thrombosis [Unknown]
